FAERS Safety Report 22189309 (Version 4)
Quarter: 2023Q2

REPORT INFORMATION
  Report Type: Report from Study
  Country: US (occurrence: US)
  Receive Date: 20230410
  Receipt Date: 20230628
  Transmission Date: 20230722
  Serious: Yes (Other)
  Sender: FDA-Public Use
  Company Number: US-ABBVIE-4708056

PATIENT
  Sex: Male

DRUGS (2)
  1. VENCLEXTA [Suspect]
     Active Substance: VENETOCLAX
     Indication: Chronic lymphocytic leukaemia
     Dosage: FORM STRENGHT:100 MG, TAKE 2 TABLETS BY MOUTH DAILY
     Route: 048
  2. VENCLEXTA [Suspect]
     Active Substance: VENETOCLAX
     Indication: Chronic lymphocytic leukaemia
     Dosage: WITH FOOD AND WATER AS DIRECTED
     Route: 048
     Dates: start: 20230322

REACTIONS (5)
  - Platelet count decreased [Not Recovered/Not Resolved]
  - Loss of consciousness [Unknown]
  - Haemoglobin decreased [Not Recovered/Not Resolved]
  - Malaise [Unknown]
  - Red blood cell count decreased [Not Recovered/Not Resolved]
